FAERS Safety Report 14703906 (Version 1)
Quarter: 2018Q2

REPORT INFORMATION
  Report Type: Spontaneous
  Country: US (occurrence: US)
  Receive Date: 20180402
  Receipt Date: 20180402
  Transmission Date: 20180711
  Serious: No
  Sender: FDA-Public Use
  Company Number: US-PFIZER INC-2018132573

PATIENT
  Age: 79 Year
  Sex: Male
  Weight: 92.53 kg

DRUGS (2)
  1. LYRICA [Interacting]
     Active Substance: PREGABALIN
     Dosage: CUT IT DOWN TO 75MG
     Route: 048
  2. LYRICA [Suspect]
     Active Substance: PREGABALIN
     Indication: POST HERPETIC NEURALGIA
     Dosage: 175 MG
     Route: 048
     Dates: start: 2015

REACTIONS (2)
  - Drug interaction [Unknown]
  - Drug ineffective [Unknown]

NARRATIVE: CASE EVENT DATE: 2015
